FAERS Safety Report 23143245 (Version 1)
Quarter: 2023Q4

REPORT INFORMATION
  Report Type: Spontaneous
  Country: US (occurrence: US)
  Receive Date: 20231103
  Receipt Date: 20231103
  Transmission Date: 20240109
  Serious: Yes (Other)
  Sender: FDA-Public Use
  Company Number: US-TORRENT-00012947

PATIENT
  Sex: Female
  Weight: 78 kg

DRUGS (1)
  1. VALSARTAN [Suspect]
     Active Substance: VALSARTAN
     Indication: Blood pressure measurement
     Dosage: FOR 2 YEARS
     Route: 048

REACTIONS (1)
  - Ovarian cancer [Unknown]
